FAERS Safety Report 6135010-X (Version None)
Quarter: 2009Q1

REPORT INFORMATION
  Report Type: 
  Country: None (occurrence: None)
  Receive Date: 20090325
  Receipt Date: 20090308
  Transmission Date: 20090719
  Serious: Yes (Other)
  Sender: FDA-Public Use
  Company Number: 2007S1001092

PATIENT
  Age: 67 Year
  Sex: Female
  Weight: 63.5036 kg

DRUGS (11)
  1. PHOSPHOSODA FLAVOR NOT SPECIFIED [Suspect]
     Indication: COLONOSCOPY
     Dosage: 90 ML;TOTAL DOSE;PO
     Route: 048
     Dates: start: 20041214, end: 20041214
  2. LIPITOR [Concomitant]
  3. BENICAR HCT [Concomitant]
  4. DIGOXIN [Concomitant]
  5. PROTONIX /01263201/ [Concomitant]
  6. ASPIRIN [Concomitant]
  7. CALCIUM [Concomitant]
  8. SLOW MAG [Concomitant]
  9. VITAMINS [Concomitant]
  10. GLUCOPHAGE [Concomitant]
  11. IRON [Concomitant]

REACTIONS (4)
  - ANAEMIA [None]
  - DECREASED APPETITE [None]
  - RENAL FAILURE ACUTE [None]
  - RETCHING [None]
